FAERS Safety Report 7875323-4 (Version None)
Quarter: 2011Q4

REPORT INFORMATION
  Report Type: 
  Country: None (occurrence: None)
  Receive Date: 20111031
  Receipt Date: 20111017
  Transmission Date: 20120403
  Serious: Yes (Hospitalization)
  Sender: FDA-Public Use
  Company Number: PHHY2011FR92960

PATIENT
  Sex: Female
  Weight: 60 kg

DRUGS (4)
  1. TASIGNA [Suspect]
     Indication: CHRONIC MYELOID LEUKAEMIA
     Dosage: 800 MG, DAILY
     Route: 048
     Dates: start: 20091124
  2. LEVOTHYROXINE SODIUM [Concomitant]
     Indication: HYPOTHYROIDISM
     Dosage: 25 MG, DAILY
     Dates: start: 19980101
  3. IRBESARTAN AND HYDROCHLOROTHIAZIDE [Concomitant]
     Indication: HYPERTENSION
     Dosage: 150 MG, DAILY
     Dates: start: 20100101
  4. ESOMEPRAZOLE SODIUM [Concomitant]
     Indication: ABDOMINAL PAIN UPPER
     Dosage: 20 MG, DAILY
     Dates: start: 20100101

REACTIONS (2)
  - ACUTE CORONARY SYNDROME [None]
  - CHEST PAIN [None]
